FAERS Safety Report 19680410 (Version 1)
Quarter: 2021Q3

REPORT INFORMATION
  Report Type: Spontaneous
  Country: US (occurrence: US)
  Receive Date: 20210810
  Receipt Date: 20210810
  Transmission Date: 20211014
  Serious: Yes (Hospitalization)
  Sender: FDA-Public Use
  Company Number: None

PATIENT
  Age: 83 Year

DRUGS (4)
  1. TOUJEO MAX [Concomitant]
     Active Substance: INSULIN GLARGINE
  2. COENZYME Q10 [Concomitant]
     Active Substance: DIETARY SUPPLEMENT\UBIDECARENONE
  3. REPATHA [Suspect]
     Active Substance: EVOLOCUMAB
     Indication: TYPE IIA HYPERLIPIDAEMIA
     Route: 058
     Dates: start: 20201125, end: 20210809
  4. CENTRUM [Concomitant]
     Active Substance: VITAMINS

REACTIONS (2)
  - Hospice care [None]
  - Therapy cessation [None]

NARRATIVE: CASE EVENT DATE: 20210809
